FAERS Safety Report 24548574 (Version 1)
Quarter: 2024Q4

REPORT INFORMATION
  Report Type: Other
  Country: GB (occurrence: GB)
  Receive Date: 20241025
  Receipt Date: 20241025
  Transmission Date: 20250115
  Serious: Yes (Other)
  Sender: MACLEODS
  Company Number: None

PATIENT

DRUGS (2)
  1. ARIPIPRAZOLE [Suspect]
     Active Substance: ARIPIPRAZOLE
     Indication: Depressed mood
     Dosage: 5 MG OD MANE
     Route: 065
     Dates: start: 202408
  2. CLOMIPRAMINE [Concomitant]
     Active Substance: CLOMIPRAMINE
     Indication: Obsessive-compulsive disorder
     Route: 065

REACTIONS (1)
  - Impulse-control disorder [Not Recovered/Not Resolved]

NARRATIVE: CASE EVENT DATE: 20240901
